FAERS Safety Report 10725886 (Version 1)
Quarter: 2015Q1

REPORT INFORMATION
  Report Type: Spontaneous
  Country: US (occurrence: None)
  Receive Date: 20150116
  Receipt Date: 20150116
  Transmission Date: 20150721
  Serious: Yes (Hospitalization)
  Sender: FDA-Public Use
  Company Number: ORE201501-000009

PATIENT
  Age: 37 Year
  Sex: Male
  Weight: 72.58 kg

DRUGS (1)
  1. ZUBSOLV [Suspect]
     Active Substance: BUPRENORPHINE HYDROCHLORIDE\NALOXONE HYDROCHLORIDE
     Indication: DRUG DEPENDENCE
     Dosage: 5.7 MG/1.4 MG (1 DOSAGE FORMS, 1 IN 1 D), SUBLINGUAL ?
     Route: 060
     Dates: start: 201408

REACTIONS (2)
  - Rash [None]
  - Cellulitis [None]

NARRATIVE: CASE EVENT DATE: 201409
